FAERS Safety Report 23970968 (Version 2)
Quarter: 2024Q3

REPORT INFORMATION
  Report Type: Report from Study
  Country: IL (occurrence: IL)
  Receive Date: 20240613
  Receipt Date: 20240722
  Transmission Date: 20241017
  Serious: Yes (Other)
  Sender: ABBVIE
  Company Number: IL-ABBVIE-5796297

PATIENT
  Age: 76 Year
  Sex: Female

DRUGS (2)
  1. CARBIDOPA\LEVODOPA [Suspect]
     Active Substance: CARBIDOPA\LEVODOPA
     Indication: Parkinson^s disease
     Dosage: MORNING DOSAGE 5ML,CONTINUOUS DOSAGE 5.5ML/H, EXTRA DOSAGE 0.2ML
     Route: 050
  2. CARBIDOPA\LEVODOPA [Suspect]
     Active Substance: CARBIDOPA\LEVODOPA
     Route: 050
     Dates: start: 20201102

REACTIONS (4)
  - Embedded device [Unknown]
  - Device issue [Unknown]
  - Stoma site odour [Unknown]
  - Stoma site infection [Unknown]

NARRATIVE: CASE EVENT DATE: 20240602
